FAERS Safety Report 12224989 (Version 5)
Quarter: 2016Q2

REPORT INFORMATION
  Report Type: Spontaneous
  Country: CN (occurrence: CN)
  Receive Date: 20160331
  Receipt Date: 20160518
  Transmission Date: 20160815
  Serious: Yes (Life-Threatening, Hospitalization, Other)
  Sender: FDA-Public Use
  Company Number: CN-ROCHE-1734880

PATIENT
  Age: 68 Year
  Sex: Female
  Weight: 74 kg

DRUGS (4)
  1. AVASTIN [Suspect]
     Active Substance: BEVACIZUMAB
     Indication: COLORECTAL CANCER METASTATIC
     Route: 042
     Dates: start: 20150302, end: 20151016
  2. AVASTIN [Suspect]
     Active Substance: BEVACIZUMAB
     Route: 042
     Dates: end: 20160323
  3. XELODA [Suspect]
     Active Substance: CAPECITABINE
     Indication: COLORECTAL CANCER METASTATIC
     Dosage: 5 TABLETS PER DAY
     Route: 048
     Dates: start: 20160106, end: 201602
  4. AVASTIN [Suspect]
     Active Substance: BEVACIZUMAB
     Route: 042
     Dates: start: 20151027, end: 20160105

REACTIONS (7)
  - Tachypnoea [Unknown]
  - Peritonitis [Recovering/Resolving]
  - Intestinal perforation [Recovering/Resolving]
  - Oxygen saturation decreased [Unknown]
  - Pleural effusion [Unknown]
  - Chest discomfort [Unknown]
  - Respiratory failure [Unknown]

NARRATIVE: CASE EVENT DATE: 201603
